FAERS Safety Report 16292275 (Version 1)
Quarter: 2019Q2

REPORT INFORMATION
  Report Type: Spontaneous
  Country: CN (occurrence: CN)
  Receive Date: 20190509
  Receipt Date: 20190509
  Transmission Date: 20190711
  Serious: Yes (Hospitalization)
  Sender: FDA-Public Use
  Company Number: CN-BAXTER-2019BAX009147

PATIENT
  Age: 12 Year
  Sex: Male
  Weight: 30 kg

DRUGS (4)
  1. HOLOXAN [Suspect]
     Active Substance: IFOSFAMIDE
     Indication: OSTEOSARCOMA
     Dosage: IFOSFAMIDE FOR INJECTION 2.5G + 0.9% NS 500ML IVGTT QD
     Route: 041
     Dates: start: 20190403, end: 20190405
  2. HOLOXAN [Suspect]
     Active Substance: IFOSFAMIDE
     Indication: CHONDROSARCOMA
     Dosage: DOSE RE-INTRODUCED; IFOSFAMIDE FOR INJECTION + 0.9%NS IVGTT QD
     Route: 041
  3. 0.9% SODIUM CHLORIDE INJECTION [Suspect]
     Active Substance: SODIUM CHLORIDE
     Indication: MEDICATION DILUTION
     Dosage: IFOSFAMIDE FOR INJECTION 2.5G + 0.9% NS 500ML IVGTT QD
     Route: 041
     Dates: start: 20190403, end: 20190405
  4. 0.9% SODIUM CHLORIDE INJECTION [Suspect]
     Active Substance: SODIUM CHLORIDE
     Dosage: DOSE RE-INTRODUCED; IFOSFAMIDE FOR INJECTION 2.5G + 0.9%NS IVGTT QD
     Route: 041

REACTIONS (1)
  - Bone marrow failure [Recovering/Resolving]

NARRATIVE: CASE EVENT DATE: 20190410
